FAERS Safety Report 22308856 (Version 1)
Quarter: 2023Q2

REPORT INFORMATION
  Report Type: Spontaneous
  Country: GB (occurrence: GB)
  Receive Date: 20230511
  Receipt Date: 20230511
  Transmission Date: 20230722
  Serious: Yes (Death, Other)
  Sender: FDA-Public Use
  Company Number: GB-ASTELLAS-2023US014578

PATIENT
  Age: 35 Year

DRUGS (6)
  1. XOSPATA [Suspect]
     Active Substance: GILTERITINIB
     Indication: FLT3 gene mutation
     Dosage: UNK UNK, UNKNOWN FREQ.
     Route: 065
     Dates: start: 202202
  2. XOSPATA [Suspect]
     Active Substance: GILTERITINIB
     Indication: Acute myeloid leukaemia recurrent
  3. XOSPATA [Suspect]
     Active Substance: GILTERITINIB
     Indication: Acute myeloid leukaemia refractory
  4. DAUNORUBICIN [Concomitant]
     Active Substance: DAUNORUBICIN
     Indication: FLT3 gene mutation
     Dosage: UNK UNK, UNKNOWN FREQ.
     Route: 065
  5. DAUNORUBICIN [Concomitant]
     Active Substance: DAUNORUBICIN
     Indication: Tyrosine kinase mutation
  6. MIDOSTAURIN [Concomitant]
     Active Substance: MIDOSTAURIN
     Indication: NPM1 gene mutation
     Dosage: UNK UNK, UNKNOWN FREQ.
     Route: 065

REACTIONS (1)
  - Graft versus host disease [Fatal]
